FAERS Safety Report 8138832 (Version 2)
Quarter: 2013Q1

REPORT INFORMATION
  Report Type: Spontaneous
  Country: GB (occurrence: GB)
  Receive Date: 20110915
  Receipt Date: 20130305
  Transmission Date: 20140127
  Serious: Yes (Other)
  Sender: FDA-Public Use
  Company Number: GB-BAXTER-2011BH022616

PATIENT
  Age: 14 Year
  Sex: Female
  Weight: 57 kg

DRUGS (6)
  1. KIOVIG [Suspect]
     Indication: ANAPHYLACTIC REACTION
     Route: 065
     Dates: start: 20110412, end: 20110705
  2. KIOVIG [Suspect]
     Indication: OFF LABEL USE
  3. MERCAPTOPURINE [Concomitant]
     Indication: ACUTE LYMPHOCYTIC LEUKAEMIA
     Route: 048
     Dates: start: 201003
  4. METHOTREXATE [Concomitant]
     Indication: ACUTE LYMPHOCYTIC LEUKAEMIA
     Route: 048
     Dates: start: 201003
  5. METHOTREXATE [Concomitant]
     Indication: ACUTE LYMPHOCYTIC LEUKAEMIA
     Route: 037
     Dates: start: 201003
  6. SEPTRIN [Concomitant]
     Indication: ACUTE LYMPHOCYTIC LEUKAEMIA
     Route: 048
     Dates: start: 201001

REACTIONS (7)
  - Malaise [Recovered/Resolved]
  - Pallor [Recovered/Resolved]
  - Livedo reticularis [Recovered/Resolved]
  - Anaphylactic reaction [Recovered/Resolved]
  - Myalgia [Recovered/Resolved]
  - Unevaluable event [Recovered/Resolved]
  - Headache [Recovered/Resolved]
